FAERS Safety Report 11512938 (Version 2)
Quarter: 2015Q3

REPORT INFORMATION
  Report Type: Spontaneous
  Country: US (occurrence: US)
  Receive Date: 20150903
  Receipt Date: 20150903
  Transmission Date: 20151125
  Serious: No
  Sender: FDA-Public Use
  Company Number: US-ELI_LILLY_AND_COMPANY-US201003002705

PATIENT
  Age: 84 Year
  Sex: Male
  Weight: 93.88 kg

DRUGS (15)
  1. LANTUS [Concomitant]
     Active Substance: INSULIN GLARGINE
  2. ACTOS [Concomitant]
     Active Substance: PIOGLITAZONE HYDROCHLORIDE
  3. HUMALOG [Suspect]
     Active Substance: INSULIN LISPRO
     Dosage: 10 U, EACH EVENING
     Dates: start: 20100308
  4. LOPRESSOR [Concomitant]
     Active Substance: METOPROLOL TARTRATE
  5. FISH OIL [Concomitant]
     Active Substance: FISH OIL
  6. ZOCOR [Concomitant]
     Active Substance: SIMVASTATIN
  7. COZAAR [Concomitant]
     Active Substance: LOSARTAN POTASSIUM
  8. HUMALOG [Suspect]
     Active Substance: INSULIN LISPRO
     Indication: TYPE 2 DIABETES MELLITUS
     Dosage: 6 U, OTHER
     Dates: start: 20100308
  9. AMARYL [Concomitant]
     Active Substance: GLIMEPIRIDE
  10. HUMALOG [Suspect]
     Active Substance: INSULIN LISPRO
     Dosage: 10 U, EACH EVENING
     Dates: start: 20100222
  11. HUMALOG [Suspect]
     Active Substance: INSULIN LISPRO
     Indication: TYPE 2 DIABETES MELLITUS
     Dosage: 6 U, OTHER
     Dates: start: 20100222
  12. VITAMINS [Concomitant]
     Active Substance: VITAMINS
  13. AVANDIA [Concomitant]
     Active Substance: ROSIGLITAZONE MALEATE
  14. ASPIRIN. [Concomitant]
     Active Substance: ASPIRIN
  15. ORAL ANTIDIABETICS [Concomitant]
     Active Substance: UNSPECIFIED INGREDIENT

REACTIONS (2)
  - Drug dispensing error [Not Recovered/Not Resolved]
  - Weight increased [Unknown]

NARRATIVE: CASE EVENT DATE: 20100222
